FAERS Safety Report 23256984 (Version 1)
Quarter: 2023Q4

REPORT INFORMATION
  Report Type: Report from Study
  Country: US (occurrence: US)
  Receive Date: 20231204
  Receipt Date: 20231204
  Transmission Date: 20240110
  Serious: No
  Sender: FDA-Public Use
  Company Number: US-ALXN-A202212595

PATIENT
  Sex: Female

DRUGS (1)
  1. SOLIRIS [Suspect]
     Active Substance: ECULIZUMAB
     Indication: Myasthenia gravis
     Dosage: UNK
     Route: 065
     Dates: start: 202108

REACTIONS (9)
  - Aphonia [Recovering/Resolving]
  - Posture abnormal [Recovering/Resolving]
  - Dysphagia [Not Recovered/Not Resolved]
  - Fall [Recovering/Resolving]
  - Speech disorder [Not Recovered/Not Resolved]
  - Muscular weakness [Recovering/Resolving]
  - Device issue [Unknown]
  - Asthenia [Recovering/Resolving]
  - Dyspnoea [Not Recovered/Not Resolved]
